FAERS Safety Report 20928504 (Version 2)
Quarter: 2022Q2

REPORT INFORMATION
  Report Type: Report from Study
  Country: ES (occurrence: None)
  Receive Date: 20220607
  Receipt Date: 20220610
  Transmission Date: 20220721
  Serious: Yes (Hospitalization, Other)
  Sender: FDA-Public Use
  Company Number: ES-ROCHE-2522385

PATIENT
  Age: 58 Year
  Sex: Female
  Weight: 77.8 kg

DRUGS (62)
  1. ATEZOLIZUMAB [Suspect]
     Active Substance: ATEZOLIZUMAB
     Indication: Triple negative breast cancer
     Dosage: DATE OF MOST RECENT DOSE OF BLINDED ATEZOLIZUMAB PRIOR TO AE AND SAE ONSET: 27/DEC/2019.
     Route: 041
     Dates: start: 20190516
  2. PACLITAXEL [Suspect]
     Active Substance: PACLITAXEL
     Indication: Triple negative breast cancer
     Dosage: DATE OF MOST RECENT DOSE OF PACLITAXEL (65 MG/M2) PRIOR TO AE AND SAE ONSET: 02/JAN/2020.
     Route: 042
     Dates: start: 20190516
  3. ALENDRONIC ACID [Concomitant]
     Active Substance: ALENDRONIC ACID
     Dates: start: 2012
  4. CALCIUM CARBONATE [Concomitant]
     Active Substance: CALCIUM CARBONATE
     Dates: start: 2012
  5. DEXKETOPROFEN [Concomitant]
     Active Substance: DEXKETOPROFEN
     Dates: start: 20190625
  6. DULOXETINE [Concomitant]
     Active Substance: DULOXETINE
     Dates: start: 2015
  7. GABAPENTIN [Concomitant]
     Active Substance: GABAPENTIN
     Dates: start: 20190625
  8. LANSOPRAZOLE [Concomitant]
     Active Substance: LANSOPRAZOLE
     Indication: Prophylaxis
  9. LEVOTHYROXINE [Concomitant]
     Active Substance: LEVOTHYROXINE
     Dates: start: 2016
  10. METAMIZOLE [Concomitant]
     Active Substance: METAMIZOLE
     Dates: start: 20190625
  11. SIMVASTATIN [Concomitant]
     Active Substance: SIMVASTATIN
     Indication: Prophylaxis
  12. TAPENTADOL [Concomitant]
     Active Substance: TAPENTADOL
     Dates: start: 20190625
  13. ENOXAPARIN [Concomitant]
     Active Substance: ENOXAPARIN
     Dates: start: 20200113
  14. OMEPRAZOLE [Concomitant]
     Active Substance: OMEPRAZOLE
     Dates: start: 20200109
  15. ACETAMINOPHEN [Concomitant]
     Active Substance: ACETAMINOPHEN
     Dates: start: 20200109
  16. GRANISETRON [Concomitant]
     Active Substance: GRANISETRON
     Dates: start: 20191031, end: 20191031
  17. GRANISETRON [Concomitant]
     Active Substance: GRANISETRON
     Dates: start: 20190530, end: 20190530
  18. GRANISETRON [Concomitant]
     Active Substance: GRANISETRON
     Dates: start: 20190627, end: 20190627
  19. GRANISETRON [Concomitant]
     Active Substance: GRANISETRON
     Dates: start: 20191227, end: 20191227
  20. GRANISETRON [Concomitant]
     Active Substance: GRANISETRON
     Dates: start: 20190725, end: 20190725
  21. GRANISETRON [Concomitant]
     Active Substance: GRANISETRON
     Dates: start: 20190822, end: 20190822
  22. GRANISETRON [Concomitant]
     Active Substance: GRANISETRON
     Dates: start: 20190621, end: 20190621
  23. GRANISETRON [Concomitant]
     Active Substance: GRANISETRON
     Dates: start: 20190919, end: 20190919
  24. GRANISETRON [Concomitant]
     Active Substance: GRANISETRON
     Dates: start: 20190718, end: 20190718
  25. GRANISETRON [Concomitant]
     Active Substance: GRANISETRON
     Dates: start: 20191017, end: 20191017
  26. GRANISETRON [Concomitant]
     Active Substance: GRANISETRON
     Dates: start: 20190516, end: 20190516
  27. GRANISETRON [Concomitant]
     Active Substance: GRANISETRON
     Dates: start: 20190816, end: 20190816
  28. GRANISETRON [Concomitant]
     Active Substance: GRANISETRON
     Dates: start: 20191113, end: 20191113
  29. GRANISETRON [Concomitant]
     Active Substance: GRANISETRON
     Dates: start: 20190613, end: 20190613
  30. GRANISETRON [Concomitant]
     Active Substance: GRANISETRON
     Dates: start: 20190912, end: 20190912
  31. GRANISETRON [Concomitant]
     Active Substance: GRANISETRON
     Dates: start: 20191212, end: 20191212
  32. GRANISETRON [Concomitant]
     Active Substance: GRANISETRON
     Dates: start: 20190711, end: 20190711
  33. GRANISETRON [Concomitant]
     Active Substance: GRANISETRON
     Dates: start: 20190808, end: 20190808
  34. GRANISETRON [Concomitant]
     Active Substance: GRANISETRON
     Dates: start: 20191106, end: 20191106
  35. GRANISETRON [Concomitant]
     Active Substance: GRANISETRON
     Dates: start: 20190905, end: 20190905
  36. GRANISETRON [Concomitant]
     Active Substance: GRANISETRON
     Dates: start: 20191205, end: 20191205
  37. GRANISETRON [Concomitant]
     Active Substance: GRANISETRON
     Dates: start: 20191003, end: 20191003
  38. GRANISETRON [Concomitant]
     Active Substance: GRANISETRON
     Dates: start: 20200102, end: 20200102
  39. RANITIDINE [Concomitant]
     Active Substance: RANITIDINE
     Indication: Premedication
     Dates: start: 20190816, end: 20190816
  40. RANITIDINE [Concomitant]
     Active Substance: RANITIDINE
     Dates: start: 20190530, end: 20190530
  41. RANITIDINE [Concomitant]
     Active Substance: RANITIDINE
     Dates: start: 20190725, end: 20190725
  42. RANITIDINE [Concomitant]
     Active Substance: RANITIDINE
     Dates: start: 20191003, end: 20191003
  43. RANITIDINE [Concomitant]
     Active Substance: RANITIDINE
     Dates: start: 20191205, end: 20191205
  44. RANITIDINE [Concomitant]
     Active Substance: RANITIDINE
     Dates: start: 20190905, end: 20190905
  45. RANITIDINE [Concomitant]
     Active Substance: RANITIDINE
     Dates: start: 20191106, end: 20191106
  46. RANITIDINE [Concomitant]
     Active Substance: RANITIDINE
     Dates: start: 20190808, end: 20190808
  47. RANITIDINE [Concomitant]
     Active Substance: RANITIDINE
     Dates: start: 20190711, end: 20190711
  48. RANITIDINE [Concomitant]
     Active Substance: RANITIDINE
     Dates: start: 20191212, end: 20191212
  49. RANITIDINE [Concomitant]
     Active Substance: RANITIDINE
     Dates: start: 20190912, end: 20190912
  50. RANITIDINE [Concomitant]
     Active Substance: RANITIDINE
     Dates: start: 20190613, end: 20190613
  51. RANITIDINE [Concomitant]
     Active Substance: RANITIDINE
     Dates: start: 20191113, end: 20191113
  52. RANITIDINE [Concomitant]
     Active Substance: RANITIDINE
     Dates: start: 20190516, end: 20190516
  53. RANITIDINE [Concomitant]
     Active Substance: RANITIDINE
     Dates: start: 20191017, end: 20191017
  54. RANITIDINE [Concomitant]
     Active Substance: RANITIDINE
     Dates: start: 20190718, end: 20190718
  55. RANITIDINE [Concomitant]
     Active Substance: RANITIDINE
     Dates: start: 20190919, end: 20190919
  56. RANITIDINE [Concomitant]
     Active Substance: RANITIDINE
     Dates: start: 20190621, end: 20190621
  57. RANITIDINE [Concomitant]
     Active Substance: RANITIDINE
     Dates: start: 20190822, end: 20190822
  58. RANITIDINE [Concomitant]
     Active Substance: RANITIDINE
     Dates: start: 20191227, end: 20191227
  59. RANITIDINE [Concomitant]
     Active Substance: RANITIDINE
     Dates: start: 20190627, end: 20190627
  60. RANITIDINE [Concomitant]
     Active Substance: RANITIDINE
     Dates: start: 20191031, end: 20191031
  61. RANITIDINE [Concomitant]
     Active Substance: RANITIDINE
     Dates: start: 20190816, end: 20190816
  62. RANITIDINE [Concomitant]
     Active Substance: RANITIDINE
     Dates: start: 20200102, end: 20200102

REACTIONS (2)
  - Fibula fracture [Recovered/Resolved]
  - Fracture [Unknown]

NARRATIVE: CASE EVENT DATE: 20200109
